FAERS Safety Report 6466643-9 (Version None)
Quarter: 2009Q4

REPORT INFORMATION
  Report Type: 
  Country: None (occurrence: None)
  Receive Date: 20091127
  Receipt Date: 20091127
  Transmission Date: 20100525
  Serious: No
  Sender: FDA-Public Use
  Company Number: None

PATIENT

DRUGS (2)
  1. ZICAM NASAL GEL SPRAY [Suspect]
     Dosage: DURATION
     Dates: start: 20090601
  2. ZICAM NASAL GEL SPRAY [Suspect]
     Dosage: DURATION
     Dates: start: 20091001

REACTIONS (2)
  - AGEUSIA [None]
  - ANOSMIA [None]
